FAERS Safety Report 5676362-4 (Version None)
Quarter: 2008Q1

REPORT INFORMATION
  Report Type: 
  Country: None (occurrence: None)
  Receive Date: 20080321
  Receipt Date: 20080310
  Transmission Date: 20080703
  Serious: Yes (Other)
  Sender: FDA-Public Use
  Company Number: BR-PFIZER INC-2008022736

PATIENT
  Sex: Male

DRUGS (1)
  1. CHAMPIX [Suspect]
     Route: 048

REACTIONS (1)
  - BIPOLAR DISORDER [None]
